FAERS Safety Report 8435826-0 (Version None)
Quarter: 2012Q2

REPORT INFORMATION
  Report Type: 
  Country: None (occurrence: None)
  Receive Date: 20120614
  Receipt Date: 20120607
  Transmission Date: 20120825
  Serious: Yes (Death)
  Sender: FDA-Public Use
  Company Number: JP-AMGEN-JPNCT2011065555

PATIENT
  Age: 65 Year
  Sex: Female
  Weight: 53 kg

DRUGS (10)
  1. DECADRON [Concomitant]
     Dosage: UNK
     Route: 042
  2. OXALIPLATIN [Concomitant]
     Indication: COLORECTAL CANCER
     Dosage: 85 MG/M2, Q2WK
     Route: 041
     Dates: start: 20101029
  3. FLUOROURACIL [Concomitant]
     Indication: COLORECTAL CANCER
     Dosage: 400 MG/M2, Q2WK
     Route: 040
     Dates: start: 20101029
  4. KYTRIL [Concomitant]
     Dosage: UNK
     Route: 042
  5. PANITUMUMAB [Suspect]
     Indication: COLORECTAL CANCER
     Dosage: 6 MG/KG, Q2WK
     Route: 041
     Dates: start: 20101029, end: 20101117
  6. PANITUMUMAB [Suspect]
     Dosage: 6 MG/KG, Q2WK
     Route: 041
     Dates: start: 20101210, end: 20101210
  7. PANITUMUMAB [Suspect]
     Dosage: 6 MG/KG, Q2WK
     Route: 041
     Dates: start: 20110302
  8. LEUCOVORIN CALCIUM [Concomitant]
     Indication: COLORECTAL CANCER
     Dosage: 200 MG/M2, Q2WK
     Route: 041
     Dates: start: 20101029
  9. FLUOROURACIL [Concomitant]
     Dosage: 2400 MG/M2, Q2WK
     Route: 041
     Dates: start: 20101029
  10. PANITUMUMAB [Suspect]
     Dosage: 6 MG/KG, Q2WK
     Route: 041
     Dates: start: 20110115, end: 20110115

REACTIONS (5)
  - DRY SKIN [None]
  - MULTI-ORGAN FAILURE [None]
  - STOMATITIS [None]
  - RASH GENERALISED [None]
  - PRURITUS [None]
